FAERS Safety Report 4937315-4 (Version None)
Quarter: 2006Q1

REPORT INFORMATION
  Report Type: 
  Country: None (occurrence: None)
  Receive Date: 20060309
  Receipt Date: 20041207
  Transmission Date: 20060701
  Serious: Yes (Disabling, Other)
  Sender: FDA-Public Use
  Company Number: PHEH2004US13128

PATIENT
  Age: 82 Year
  Sex: Female
  Weight: 59 kg

DRUGS (8)
  1. COZAAR [Concomitant]
     Dosage: 50 MG, UNK
  2. ZOCOR [Concomitant]
     Dosage: 80 MG, QD
  3. DIURETICS [Concomitant]
  4. CELEBREX [Concomitant]
  5. MIACALCIN [Suspect]
     Indication: OSTEOPOROSIS
     Dosage: 200 IU, QD
     Route: 045
     Dates: start: 20040517, end: 20041001
  6. RELAFEN [Concomitant]
  7. ATENOLOL [Concomitant]
     Dosage: 75 MG, QD
  8. PLAVIX [Concomitant]
     Dosage: 75 MG, QD

REACTIONS (8)
  - AGEUSIA [None]
  - ANOSMIA [None]
  - BRAIN DAMAGE [None]
  - EATING DISORDER [None]
  - MEDICAL DEVICE COMPLICATION [None]
  - NASAL DISCOMFORT [None]
  - NASAL DISORDER [None]
  - WEIGHT DECREASED [None]
